FAERS Safety Report 6270775-8 (Version None)
Quarter: 2009Q3

REPORT INFORMATION
  Report Type: 
  Country: None (occurrence: None)
  Receive Date: 20090716
  Receipt Date: 20090713
  Transmission Date: 20100115
  Serious: Yes (Other)
  Sender: FDA-Public Use
  Company Number: US-JNJCH-2009019086

PATIENT
  Age: 41 Year
  Sex: Male
  Weight: 77.1 kg

DRUGS (1)
  1. LUBRIDERM SHEA/COCOA BUTTER [Suspect]
     Indication: THERAPEUTIC SKIN CARE TOPICAL
     Dosage: TEXT:^MASSIVE AMOUNT^ EVERY NIGHT
     Route: 061

REACTIONS (1)
  - FACIAL PALSY [None]
